FAERS Safety Report 7281840-0 (Version None)
Quarter: 2011Q1

REPORT INFORMATION
  Report Type: 
  Country: None (occurrence: None)
  Receive Date: 20110208
  Receipt Date: 20110117
  Transmission Date: 20110831
  Serious: Yes (Hospitalization, Other)
  Sender: FDA-Public Use
  Company Number: FR-BAXTER-2010BH030641

PATIENT
  Sex: Female
  Weight: 10 kg

DRUGS (51)
  1. EXTRANEAL [Suspect]
     Indication: OFF LABEL USE
     Route: 033
     Dates: start: 20090101, end: 20101201
  2. EXTRANEAL [Suspect]
     Route: 033
     Dates: end: 20101201
  3. EXTRANEAL [Suspect]
     Route: 033
     Dates: end: 20101201
  4. EXTRANEAL [Suspect]
     Route: 033
     Dates: end: 20101201
  5. EXTRANEAL [Suspect]
     Route: 033
     Dates: end: 20101201
  6. CALCIDOSE [Concomitant]
     Indication: PRODUCT USED FOR UNKNOWN INDICATION
     Route: 065
  7. EXTRANEAL [Suspect]
     Route: 033
     Dates: end: 20101201
  8. EXTRANEAL [Suspect]
     Route: 033
     Dates: end: 20101201
  9. LECOCARNIL [Concomitant]
     Indication: PRODUCT USED FOR UNKNOWN INDICATION
     Route: 065
  10. MEDICATIONS FOR CHRONIC RENAL INSUFFICIENCY [Concomitant]
     Indication: PRODUCT USED FOR UNKNOWN INDICATION
     Route: 065
  11. EXTRANEAL [Suspect]
     Route: 033
     Dates: end: 20101201
  12. EXTRANEAL [Suspect]
     Route: 033
     Dates: end: 20101201
  13. EXTRANEAL [Suspect]
     Route: 033
     Dates: end: 20101201
  14. EXTRANEAL [Suspect]
     Route: 033
     Dates: end: 20101201
  15. EXTRANEAL [Suspect]
     Route: 033
     Dates: end: 20101201
  16. EXTRANEAL [Suspect]
     Route: 033
     Dates: end: 20101201
  17. ADALAT [Concomitant]
     Indication: BLOOD PRESSURE MANAGEMENT
     Route: 065
  18. FOSRENOL [Concomitant]
     Indication: PRODUCT USED FOR UNKNOWN INDICATION
     Route: 065
  19. FUMAFER [Concomitant]
     Indication: PRODUCT USED FOR UNKNOWN INDICATION
     Route: 065
  20. EXTRANEAL [Suspect]
     Route: 033
     Dates: end: 20101201
  21. EXTRANEAL [Suspect]
     Route: 033
     Dates: end: 20101201
  22. EXTRANEAL [Suspect]
     Route: 033
     Dates: end: 20101201
  23. EPOETIN ALFA [Concomitant]
     Indication: PRODUCT USED FOR UNKNOWN INDICATION
     Route: 065
  24. NORDITROPINE [Concomitant]
     Indication: PRODUCT USED FOR UNKNOWN INDICATION
     Route: 065
  25. EXTRANEAL [Suspect]
     Route: 033
     Dates: end: 20101201
  26. EXTRANEAL [Suspect]
     Route: 033
     Dates: end: 20101201
  27. EXTRANEAL [Suspect]
     Route: 033
     Dates: end: 20101201
  28. EXTRANEAL [Suspect]
     Route: 033
     Dates: end: 20101201
  29. EXTRANEAL [Suspect]
     Route: 033
     Dates: end: 20101201
  30. EXTRANEAL [Suspect]
     Route: 033
     Dates: end: 20101201
  31. EXTRANEAL [Suspect]
     Route: 033
     Dates: end: 20101201
  32. EXTRANEAL [Suspect]
     Route: 033
     Dates: end: 20101201
  33. EXTRANEAL [Suspect]
     Route: 033
     Dates: end: 20101201
  34. ALFACALCIDOL [Concomitant]
     Indication: PRODUCT USED FOR UNKNOWN INDICATION
     Route: 065
  35. CINACALCET [Concomitant]
     Indication: PRODUCT USED FOR UNKNOWN INDICATION
     Route: 065
     Dates: end: 20101201
  36. EXTRANEAL [Suspect]
     Route: 033
     Dates: end: 20101201
  37. EXTRANEAL [Suspect]
     Route: 033
     Dates: end: 20101201
  38. PHYSIOSOL IN PLASTIC CONTAINER [Concomitant]
     Indication: PERITONEAL DIALYSIS
     Route: 033
  39. UVEDOSE [Concomitant]
     Indication: PRODUCT USED FOR UNKNOWN INDICATION
     Route: 065
  40. EXTRANEAL [Suspect]
     Route: 033
     Dates: end: 20101201
  41. EXTRANEAL [Suspect]
     Route: 033
     Dates: end: 20101201
  42. EXTRANEAL [Suspect]
     Route: 033
     Dates: end: 20101201
  43. EXTRANEAL [Suspect]
     Route: 033
     Dates: end: 20101201
  44. EXTRANEAL [Suspect]
     Route: 033
     Dates: end: 20101201
  45. EXTRANEAL [Suspect]
     Route: 033
     Dates: end: 20101201
  46. EXTRANEAL [Suspect]
     Route: 033
     Dates: end: 20101201
  47. EXTRANEAL [Suspect]
     Indication: RENAL FAILURE CHRONIC
     Route: 033
     Dates: start: 20090101, end: 20101201
  48. EXTRANEAL [Suspect]
     Indication: PERITONEAL DIALYSIS
     Route: 033
     Dates: start: 20090101, end: 20101201
  49. EXTRANEAL [Suspect]
     Route: 033
     Dates: end: 20101201
  50. EXTRANEAL [Suspect]
     Route: 033
     Dates: end: 20101201
  51. EXTRANEAL [Suspect]
     Route: 033
     Dates: end: 20101201

REACTIONS (6)
  - SEPSIS [None]
  - ABDOMINAL PAIN [None]
  - PYREXIA [None]
  - SYSTEMIC INFLAMMATORY RESPONSE SYNDROME [None]
  - GASTROENTERITIS VIRAL [None]
  - PERITONITIS [None]
